FAERS Safety Report 13668287 (Version 2)
Quarter: 2017Q3

REPORT INFORMATION
  Report Type: Spontaneous
  Country: US (occurrence: US)
  Receive Date: 20170620
  Receipt Date: 20170705
  Transmission Date: 20171127
  Serious: No
  Sender: FDA-Public Use
  Company Number: US-PFIZER INC-2017267285

PATIENT
  Sex: Female

DRUGS (1)
  1. XELJANZ XR [Suspect]
     Active Substance: TOFACITINIB CITRATE
     Dosage: 11 MG, UNK

REACTIONS (17)
  - Arthropathy [Unknown]
  - Musculoskeletal stiffness [Unknown]
  - Pain in extremity [Unknown]
  - Hand deformity [Unknown]
  - Bursitis [Unknown]
  - Joint swelling [Unknown]
  - Cough [Recovered/Resolved]
  - Pulmonary mass [Unknown]
  - Oedema peripheral [Unknown]
  - Joint range of motion decreased [Unknown]
  - Drug ineffective [Unknown]
  - Back pain [Unknown]
  - Neck pain [Recovering/Resolving]
  - Arthralgia [Unknown]
  - Fatigue [Unknown]
  - Sciatica [Unknown]
  - Nodal osteoarthritis [Unknown]
